FAERS Safety Report 8116521-4 (Version None)
Quarter: 2012Q1

REPORT INFORMATION
  Report Type: 
  Country: None (occurrence: None)
  Receive Date: 20120206
  Receipt Date: 20120125
  Transmission Date: 20120608
  Serious: Yes (Hospitalization)
  Sender: FDA-Public Use
  Company Number: US-CELGENEUS-163-21880-12012638

PATIENT
  Sex: Female
  Weight: 66.4 kg

DRUGS (25)
  1. COUMADIN [Concomitant]
     Indication: ARTERIAL THROMBOSIS
     Dosage: 4 MILLIGRAM
     Route: 065
  2. VANCOMYCIN [Concomitant]
     Dosage: 1000 MILLIGRAM
     Route: 041
  3. FENTANYL CITRATE [Concomitant]
     Dosage: 50 MICROGRAM
     Route: 061
  4. OXYCODONE HCL [Concomitant]
     Indication: PAIN
     Dosage: 2 TABLET
     Route: 048
  5. SIMVASTATIN [Concomitant]
     Dosage: 20 MILLIGRAM
     Route: 048
  6. PROTONIX [Concomitant]
     Route: 065
  7. SODIUM BICARBONATE [Concomitant]
     Indication: METABOLIC ACIDOSIS
     Dosage: 650 MILLIGRAM
     Route: 048
  8. VORICONAZOLE [Concomitant]
     Route: 065
  9. BENAZEPRIL HYDROCHLORIDE [Concomitant]
     Route: 065
  10. REVLIMID [Suspect]
     Indication: MULTIPLE MYELOMA
     Dosage: 15 MILLIGRAM
     Route: 048
     Dates: start: 20111108
  11. LISINOPRIL [Concomitant]
     Indication: HYPERTENSION
     Dosage: 10 MILLIGRAM
     Route: 048
  12. REVLIMID [Suspect]
     Route: 048
     Dates: start: 20120105
  13. PLAVIX [Concomitant]
     Dosage: 75 MILLIGRAM
     Route: 048
  14. LANTUS [Concomitant]
     Dosage: 10 UNITS
     Route: 058
  15. LEVOFLOXACIN [Concomitant]
     Dosage: 500 MILLIGRAM
     Route: 041
  16. CEPHALEXIN [Concomitant]
     Indication: CELLULITIS
     Dosage: 1 TABLET
     Route: 048
  17. POLYETHYLENE GLYCOL [Concomitant]
     Indication: CONSTIPATION
     Dosage: 17 GRAM
     Route: 048
  18. NOREPINEPHRINE BITARTRATE [Concomitant]
     Dosage: 8 MILLIGRAM
     Route: 041
  19. LASIX [Concomitant]
     Route: 065
     Dates: start: 20110101
  20. MORPHINE [Concomitant]
     Indication: PAIN
     Dosage: 2 MILLIGRAM
     Route: 041
  21. DEXAMETHASONE [Suspect]
     Indication: MULTIPLE MYELOMA
     Dosage: 40 MILLIGRAM
     Route: 065
     Dates: start: 20111110
  22. SODIUM CHLORIDE [Concomitant]
     Dosage: 150ML/HR
     Route: 041
  23. MUCOMYST [Concomitant]
     Route: 065
  24. VITAMIIN K [Concomitant]
     Route: 065
  25. LEVOFLOXACIN [Concomitant]
     Dosage: 750 MILLIGRAM
     Route: 041

REACTIONS (5)
  - RENAL FAILURE ACUTE [None]
  - SEPTIC SHOCK [None]
  - PANCYTOPENIA [None]
  - PNEUMONIA [None]
  - PERIPHERAL ARTERIAL OCCLUSIVE DISEASE [None]
